FAERS Safety Report 4832555-7 (Version None)
Quarter: 2005Q4

REPORT INFORMATION
  Report Type: 
  Country: None (occurrence: None)
  Receive Date: 20051117
  Receipt Date: 20051101
  Transmission Date: 20060501
  Serious: Yes (Death)
  Sender: FDA-Public Use
  Company Number: 0205055

PATIENT
  Age: 83 Year
  Sex: Female

DRUGS (8)
  1. DEPODUR [Suspect]
     Indication: POSTOPERATIVE ANALGESIA
     Dosage: 12 MG (ONCE), EPIDURAL
     Route: 008
     Dates: start: 20051018, end: 20051018
  2. FENTANYL [Concomitant]
  3. DIPRAVAN (PROPOFOL) [Concomitant]
  4. NUBAIN [Concomitant]
  5. SEVOFLURANE [Concomitant]
  6. OXYGEN (OXYGEN) [Concomitant]
  7. VERAPAMIL [Concomitant]
  8. NARCAN [Concomitant]

REACTIONS (3)
  - CARDIAC ARREST [None]
  - HEART RATE INCREASED [None]
  - PULMONARY EMBOLISM [None]
